FAERS Safety Report 20557274 (Version 1)
Quarter: 2022Q1

REPORT INFORMATION
  Report Type: Spontaneous
  Country: CN (occurrence: CN)
  Receive Date: 20220307
  Receipt Date: 20220307
  Transmission Date: 20220423
  Serious: Yes (Hospitalization)
  Sender: FDA-Public Use
  Company Number: CN-CELGENE-CHN-20220208272

PATIENT
  Age: 33 Year
  Sex: Female
  Weight: 50 kg

DRUGS (3)
  1. PACLITAXEL [Suspect]
     Active Substance: PACLITAXEL
     Indication: Endometrial cancer stage IV
     Dosage: 300 MILLIGRAM
     Route: 041
     Dates: start: 20220209, end: 20220209
  2. PACLITAXEL [Suspect]
     Active Substance: PACLITAXEL
     Indication: Off label use
  3. NEDAPLATIN [Suspect]
     Active Substance: NEDAPLATIN
     Indication: Endometrial cancer stage IV
     Dosage: 100 MILLIGRAM
     Route: 041
     Dates: start: 20220209, end: 20220209

REACTIONS (1)
  - Liver injury [Recovering/Resolving]

NARRATIVE: CASE EVENT DATE: 20220210
